APPROVED DRUG PRODUCT: ZONISAMIDE
Active Ingredient: ZONISAMIDE
Strength: 100MG
Dosage Form/Route: CAPSULE;ORAL
Application: A077869 | Product #003 | TE Code: AB
Applicant: INVAGEN PHARMACEUTICALS INC
Approved: May 31, 2006 | RLD: No | RS: No | Type: RX